FAERS Safety Report 4665440-4 (Version None)
Quarter: 2005Q2

REPORT INFORMATION
  Report Type: 
  Country: None (occurrence: None)
  Receive Date: 20050518
  Receipt Date: 20050518
  Transmission Date: 20051028
  Serious: Yes (Hospitalization)
  Sender: FDA-Public Use
  Company Number: None

PATIENT
  Sex: Male

DRUGS (21)
  1. WARFARIN 7.5 MG [Suspect]
     Indication: ATRIAL FIBRILLATION
     Dosage: 7.5 MG DAILY ORAL
     Route: 048
  2. DILTIAZEM [Concomitant]
  3. RANITIDINE [Concomitant]
  4. CLONIDINE HCL [Concomitant]
  5. POTASSIUM CHLORIDE [Concomitant]
  6. SPIRONOLACTONE [Concomitant]
  7. CARVEDILOL [Concomitant]
  8. DIGOXIN [Concomitant]
  9. PRAZOSIN [Concomitant]
  10. SIMVASTATIN [Concomitant]
  11. METFORMIN [Concomitant]
  12. FERROUS SULFATE TAB [Concomitant]
  13. AUGMENTIN '125' [Concomitant]
  14. FUROSEMIDE [Concomitant]
  15. SALSALATE [Concomitant]
  16. MULTI-VITAMIN [Concomitant]
  17. ASPIRIN [Concomitant]
  18. LISINOPRIL [Concomitant]
  19. TRAZODONE [Concomitant]
  20. ALBUTEROL [Concomitant]
  21. IPRATROPIUM BROMIDE [Concomitant]

REACTIONS (2)
  - HAEMOPTYSIS [None]
  - MELAENA [None]
